FAERS Safety Report 15258063 (Version 1)
Quarter: 2018Q3

REPORT INFORMATION
  Report Type: Spontaneous
  Country: IN (occurrence: IN)
  Receive Date: 20180809
  Receipt Date: 20180809
  Transmission Date: 20181010
  Serious: Yes (Hospitalization, Other)
  Sender: FDA-Public Use
  Company Number: IN-MACLEODS PHARMACEUTICALS US LTD-MAC2018016201

PATIENT

DRUGS (2)
  1. SILDENAFIL. [Suspect]
     Active Substance: SILDENAFIL
     Indication: ERECTILE DYSFUNCTION
     Dosage: 30 DOSAGE FORM OF 100 MG TABLET, OVERDOSE, 1 TOTAL
     Route: 048
  2. SILDENAFIL. [Suspect]
     Active Substance: SILDENAFIL
     Indication: SUICIDE ATTEMPT

REACTIONS (7)
  - Priapism [Recovering/Resolving]
  - Flushing [Recovering/Resolving]
  - Intentional overdose [Unknown]
  - Vomiting [Recovering/Resolving]
  - Tachycardia [Recovering/Resolving]
  - Dehydration [Recovering/Resolving]
  - Hypotension [Recovering/Resolving]
